FAERS Safety Report 18528128 (Version 1)
Quarter: 2020Q4

REPORT INFORMATION
  Report Type: Spontaneous
  Country: US (occurrence: US)
  Receive Date: 20201120
  Receipt Date: 20201120
  Transmission Date: 20210114
  Serious: Yes (Other)
  Sender: FDA-Public Use
  Company Number: US-BAYER-2020-252663

PATIENT
  Age: 54 Year
  Sex: Female

DRUGS (2)
  1. MIRENA [Suspect]
     Active Substance: LEVONORGESTREL
     Indication: UTERINE LEIOMYOMA
  2. MIRENA [Suspect]
     Active Substance: LEVONORGESTREL
     Indication: MENORRHAGIA
     Dosage: 20 ?G PER DAY CONTINUOUSLY
     Route: 015
     Dates: start: 201305, end: 20201116

REACTIONS (7)
  - Medical device monitoring error [Recovered/Resolved]
  - Amenorrhoea [None]
  - Procedural pain [Recovered/Resolved]
  - Contraindicated device used [Recovered/Resolved]
  - Complication of device removal [Recovered/Resolved]
  - Post procedural haemorrhage [Not Recovered/Not Resolved]
  - Device use issue [Recovered/Resolved]

NARRATIVE: CASE EVENT DATE: 2013
